FAERS Safety Report 22352186 (Version 1)
Quarter: 2023Q2

REPORT INFORMATION
  Report Type: Spontaneous
  Country: US (occurrence: US)
  Receive Date: 20230522
  Receipt Date: 20230522
  Transmission Date: 20230722
  Serious: Yes (Death, Other)
  Sender: FDA-Public Use
  Company Number: US-GILEAD-2023-0628715

PATIENT
  Age: 55 Year
  Sex: Male
  Weight: 184 kg

DRUGS (1)
  1. YESCARTA [Suspect]
     Active Substance: AXICABTAGENE CILOLEUCEL
     Indication: Diffuse large B-cell lymphoma
     Dosage: UNK, INFUSION
     Route: 065
     Dates: start: 20230209, end: 20230209

REACTIONS (12)
  - Disease progression [Fatal]
  - Cytokine release syndrome [Unknown]
  - Immune effector cell-associated neurotoxicity syndrome [Unknown]
  - Fatigue [Unknown]
  - Agitation [Unknown]
  - Tremor [Unknown]
  - Aphasia [Unknown]
  - Confusional state [Unknown]
  - Incontinence [Unknown]
  - Tachypnoea [Unknown]
  - Tachycardia [Unknown]
  - Dysphagia [Unknown]

NARRATIVE: CASE EVENT DATE: 20230210
